FAERS Safety Report 8353017-9 (Version None)
Quarter: 2012Q2

REPORT INFORMATION
  Report Type: 
  Country: None (occurrence: None)
  Receive Date: 20120511
  Receipt Date: 20120504
  Transmission Date: 20120825
  Serious: Yes (Hospitalization)
  Sender: FDA-Public Use
  Company Number: BR-ASTRAZENECA-2012SE29504

PATIENT
  Age: 50 Year
  Sex: Male
  Weight: 108 kg

DRUGS (3)
  1. CRESTOR [Suspect]
     Indication: BLOOD CHOLESTEROL INCREASED
     Route: 048
     Dates: end: 20120201
  2. BRILINTA [Suspect]
     Indication: ARTERIAL OCCLUSIVE DISEASE
     Route: 048
     Dates: start: 20120201
  3. UNKNOWN [Concomitant]
     Indication: HYPERTENSION
     Route: 048

REACTIONS (2)
  - ARTERIAL OCCLUSIVE DISEASE [None]
  - OFF LABEL USE [None]
